FAERS Safety Report 16590854 (Version 2)
Quarter: 2019Q3

REPORT INFORMATION
  Report Type: Spontaneous
  Country: US (occurrence: US)
  Receive Date: 20190718
  Receipt Date: 20190725
  Transmission Date: 20191004
  Serious: Yes (Hospitalization)
  Sender: FDA-Public Use
  Company Number: US-PFIZER INC-2019304989

PATIENT
  Age: 30 Month
  Sex: Male

DRUGS (1)
  1. BICILLIN C-R 900/300 [Suspect]
     Active Substance: PENICILLIN G BENZATHINE\PENICILLIN G PROCAINE
     Indication: TONSILLITIS
     Dosage: 1.2 MILLION IU, UNK (1,200,000 UNITS, VOLUME 2 ML (PROGRESSIVE NUMBER OF INJECTIONS:1)
     Route: 013

REACTIONS (1)
  - Incorrect route of product administration [Unknown]
